FAERS Safety Report 14787027 (Version 3)
Quarter: 2018Q3

REPORT INFORMATION
  Report Type: Report from Study
  Country: DK (occurrence: DK)
  Receive Date: 20180420
  Receipt Date: 20180726
  Transmission Date: 20181010
  Serious: Yes (Death, Hospitalization)
  Sender: FDA-Public Use
  Company Number: DK-CONCORDIA PHARMACEUTICALS INC.-E2B_00011154

PATIENT
  Age: 74 Year
  Sex: Male
  Weight: 69 kg

DRUGS (10)
  1. IBUPROFEN. [Suspect]
     Active Substance: IBUPROFEN
     Indication: ABDOMINAL PAIN
     Dosage: AS NEEDED, MAX 3 TIMES DAILY,?400 MG, AS NEEDED, MAX 3 TIMES DAILY
     Route: 048
     Dates: start: 20171127, end: 20171224
  2. PARACETAMOL [Concomitant]
     Active Substance: ACETAMINOPHEN
     Indication: HEPATIC PAIN
     Dosage: 605 MG, 4X/DAY
     Dates: start: 20170505, end: 20171222
  3. PREDNISOLONE. [Suspect]
     Active Substance: PREDNISOLONE
     Indication: HEPATIC PAIN
     Dosage: 50 MILLIGRAM DAILY;
     Route: 048
     Dates: start: 20171222
  4. SALAZOPYRIN EN?TABS [Suspect]
     Active Substance: SULFASALAZINE
     Dosage: UNKNOWN
     Route: 048
     Dates: start: 20171018, end: 20171116
  5. PANTOPRAZOL [Concomitant]
     Active Substance: PANTOPRAZOLE SODIUM
     Indication: DYSPEPSIA
     Route: 048
     Dates: start: 201704
  6. DOMPERIDON /00498201/ [Concomitant]
     Indication: NAUSEA
     Route: 048
     Dates: start: 20171113
  7. AVELUMAB [Suspect]
     Active Substance: AVELUMAB
     Indication: BLADDER TRANSITIONAL CELL CARCINOMA
     Dosage: EVERY 2ND WEEK??CYCLIC (EVERY 2ND WEEK)
     Route: 042
     Dates: start: 20171018, end: 20171129
  8. SALAZOPYRIN EN?TABS [Suspect]
     Active Substance: SULFASALAZINE
     Indication: RHEUMATOID ARTHRITIS
     Route: 048
     Dates: start: 2005, end: 20170418
  9. AVELUMAB [Suspect]
     Active Substance: AVELUMAB
     Indication: BLADDER TRANSITIONAL CELL CARCINOMA
  10. SALAZOPYRIN EN?TABS [Suspect]
     Active Substance: SULFASALAZINE
     Dosage: 500 MG, 2X/DAY
     Route: 048
     Dates: start: 20171127, end: 20171222

REACTIONS (2)
  - Neoplasm progression [Fatal]
  - Gastric ulcer haemorrhage [Recovered/Resolved]

NARRATIVE: CASE EVENT DATE: 20171222
